FAERS Safety Report 25287326 (Version 1)
Quarter: 2025Q2

REPORT INFORMATION
  Report Type: Spontaneous
  Country: ES (occurrence: ES)
  Receive Date: 20250509
  Receipt Date: 20250509
  Transmission Date: 20250717
  Serious: Yes (Other)
  Sender: MYLAN
  Company Number: ES-MYLANLABS-2025M1038911

PATIENT
  Age: 54 Year
  Sex: Female

DRUGS (12)
  1. METHOTREXATE [Suspect]
     Active Substance: METHOTREXATE
     Indication: Spondylitis
  2. METHOTREXATE [Suspect]
     Active Substance: METHOTREXATE
     Route: 065
  3. METHOTREXATE [Suspect]
     Active Substance: METHOTREXATE
     Route: 065
  4. METHOTREXATE [Suspect]
     Active Substance: METHOTREXATE
  5. ADALIMUMAB [Suspect]
     Active Substance: ADALIMUMAB
     Indication: Spondylitis
  6. ADALIMUMAB [Suspect]
     Active Substance: ADALIMUMAB
     Route: 065
  7. ADALIMUMAB [Suspect]
     Active Substance: ADALIMUMAB
     Route: 065
  8. ADALIMUMAB [Suspect]
     Active Substance: ADALIMUMAB
  9. ETANERCEPT [Suspect]
     Active Substance: ETANERCEPT
     Indication: Spondylitis
  10. ETANERCEPT [Suspect]
     Active Substance: ETANERCEPT
     Route: 065
  11. ETANERCEPT [Suspect]
     Active Substance: ETANERCEPT
     Route: 065
  12. ETANERCEPT [Suspect]
     Active Substance: ETANERCEPT

REACTIONS (1)
  - Drug ineffective [Unknown]
